FAERS Safety Report 4749937-4 (Version None)
Quarter: 2005Q3

REPORT INFORMATION
  Report Type: 
  Country: None (occurrence: None)
  Receive Date: 20050822
  Receipt Date: 20050308
  Transmission Date: 20060218
  Serious: Yes (Hospitalization)
  Sender: FDA-Public Use
  Company Number: US-MERCK-0503USA01388

PATIENT
  Age: 50 Year
  Sex: Male
  Weight: 109 kg

DRUGS (8)
  1. VIOXX [Suspect]
     Indication: ARTHRITIS
     Route: 048
     Dates: start: 19990301, end: 20010501
  2. TOPROL-XL [Concomitant]
     Route: 065
  3. NEURONTIN [Concomitant]
     Route: 065
  4. HYZAAR [Concomitant]
     Route: 065
  5. SINGULAIR [Concomitant]
     Route: 065
  6. ASPIRIN [Concomitant]
     Route: 065
  7. IBUPROFEN [Concomitant]
     Route: 065
  8. INSULIN [Concomitant]
     Route: 065

REACTIONS (13)
  - ACUTE MYOCARDIAL INFARCTION [None]
  - ARTERIAL OCCLUSIVE DISEASE [None]
  - ASTHMA [None]
  - CHEST PAIN [None]
  - CORONARY ARTERY DISEASE [None]
  - CORONARY ARTERY RESTENOSIS [None]
  - DIABETIC FOOT [None]
  - ERECTILE DYSFUNCTION [None]
  - HYPERCHOLESTEROLAEMIA [None]
  - MYOCARDIAL INFARCTION [None]
  - NEUROPATHY PERIPHERAL [None]
  - ONYCHOMYCOSIS [None]
  - PHARYNGITIS [None]
